FAERS Safety Report 6913752-3 (Version None)
Quarter: 2010Q3

REPORT INFORMATION
  Report Type: 
  Country: None (occurrence: None)
  Receive Date: 20100809
  Receipt Date: 20100730
  Transmission Date: 20110219
  Serious: Yes (Hospitalization, Other)
  Sender: FDA-Public Use
  Company Number: US-BAYER-200937696NA

PATIENT
  Age: 19 Year
  Sex: Female
  Weight: 102 kg

DRUGS (2)
  1. YASMIN [Suspect]
     Indication: CONTRACEPTION
     Route: 048
     Dates: start: 20080701, end: 20081001
  2. ALEVE (CAPLET) [Concomitant]

REACTIONS (4)
  - GALLBLADDER DISORDER [None]
  - LIVER DISORDER [None]
  - PANCREATITIS [None]
  - PANCREATOLITHIASIS [None]
